FAERS Safety Report 5524135-5 (Version None)
Quarter: 2007Q4

REPORT INFORMATION
  Report Type: 
  Country: None (occurrence: None)
  Receive Date: 20071121
  Receipt Date: 20071115
  Transmission Date: 20080405
  Serious: Yes (Hospitalization)
  Sender: FDA-Public Use
  Company Number: JP-MERCK-0710USA02842

PATIENT
  Age: 65 Year
  Sex: Female

DRUGS (5)
  1. FAMOTIDINE [Suspect]
     Indication: GASTRITIS PROPHYLAXIS
     Route: 048
     Dates: start: 20070807
  2. URSO 250 [Concomitant]
     Indication: HEPATITIS C
     Route: 048
     Dates: start: 20070713
  3. ADALAT [Suspect]
     Route: 048
     Dates: start: 20070715
  4. INNOLET R [Suspect]
     Indication: DIABETES MELLITUS
     Route: 058
     Dates: start: 20070807
  5. BASEN [Suspect]
     Indication: DIABETES MELLITUS
     Route: 048
     Dates: start: 20070713

REACTIONS (1)
  - LIVER DISORDER [None]
